FAERS Safety Report 24789353 (Version 1)
Quarter: 2024Q4

REPORT INFORMATION
  Report Type: Spontaneous
  Country: CN (occurrence: CN)
  Receive Date: 20241230
  Receipt Date: 20241230
  Transmission Date: 20250115
  Serious: Yes (Other)
  Sender: MYLAN
  Company Number: CN-MYLANLABS-2024M1115308

PATIENT
  Age: 32 Year
  Sex: Male

DRUGS (3)
  1. CELEBREX [Suspect]
     Active Substance: CELECOXIB
     Indication: Analgesic therapy
     Dosage: 200 MILLIGRAM, BID
     Route: 048
     Dates: start: 20241127, end: 20241204
  2. EPERISONE HYDROCHLORIDE [Suspect]
     Active Substance: EPERISONE HYDROCHLORIDE
     Indication: Analgesic therapy
     Dosage: 1 DOSAGE FORM, TID
     Route: 048
     Dates: start: 20241127, end: 20241204
  3. MIACALCIC [Suspect]
     Active Substance: CALCITONIN SALMON
     Indication: Osteoporosis
     Dosage: 200 INTERNATIONAL UNIT, QD
     Route: 045
     Dates: start: 20241127, end: 20241204

REACTIONS (1)
  - Papule [Recovering/Resolving]

NARRATIVE: CASE EVENT DATE: 20241204
